FAERS Safety Report 5708315-1 (Version None)
Quarter: 2008Q1

REPORT INFORMATION
  Report Type: 
  Country: None (occurrence: None)
  Receive Date: 20080303
  Receipt Date: 20080410
  Transmission Date: 20080703
  Serious: Yes (Hospitalization)
  Sender: FDA-Public Use
  Company Number: DE-BRACCO-000083

PATIENT
  Sex: Female
  Weight: 65 kg

DRUGS (8)
  1. SOLUTRAST [Suspect]
     Indication: ANGIOPLASTY
     Route: 013
     Dates: start: 20080212, end: 20080212
  2. ASPIRIN [Concomitant]
     Indication: PERIPHERAL ARTERIAL OCCLUSIVE DISEASE
     Dosage: IN THE MORNING
     Route: 065
  3. METOPROLOL                         /00376901/ [Concomitant]
     Indication: HYPERTENSION
     Route: 065
  4. HYDROCHLOROTHIAZIDE [Concomitant]
     Indication: HYPERTENSION
     Route: 065
  5. TESOPREL [Concomitant]
     Indication: RHEUMATOID ARTHRITIS
     Dosage: IN THE EVENING
     Route: 065
  6. URBASON                            /00049601/ [Concomitant]
     Indication: RHEUMATOID ARTHRITIS
     Dosage: IN THE MORNING
     Route: 065
  7. OMEPRAZOLE [Concomitant]
     Dosage: IN THE MORNING
     Route: 065
  8. SIMVASTATIN [Concomitant]
     Indication: HYPERCHOLESTEROLAEMIA
     Dosage: IN THE EVENING
     Route: 065

REACTIONS (1)
  - SOMNOLENCE [None]
